FAERS Safety Report 10143112 (Version 3)
Quarter: 2014Q2

REPORT INFORMATION
  Report Type: Report from Study
  Country: DE (occurrence: DE)
  Receive Date: 20140430
  Receipt Date: 20140514
  Transmission Date: 20141212
  Serious: Yes (Other)
  Sender: FDA-Public Use
  Company Number: DE-BEH-2013037342

PATIENT
  Age: 34 Year
  Sex: Female
  Weight: 76 kg

DRUGS (9)
  1. PRIVIGEN [Suspect]
     Dosage: INFUSION RATE 350 ML/MIN
     Route: 042
     Dates: start: 20130404, end: 20130404
  2. PRIVIGEN [Suspect]
     Indication: IMMUNE THROMBOCYTOPENIC PURPURA
     Route: 042
     Dates: start: 20130404, end: 20130404
  3. PRIVIGEN [Suspect]
     Indication: IMMUNE THROMBOCYTOPENIC PURPURA
     Dosage: INFUSION RATE 100 ML/MIN
     Route: 042
     Dates: start: 20130426, end: 20130426
  4. PRIVIGEN [Suspect]
     Dosage: INFUSION RATE 100 ML/MIN
     Route: 042
     Dates: start: 20130514, end: 20130514
  5. PRIVIGEN [Suspect]
     Dosage: INFUSION RATE 100 ML/MIN
     Route: 042
     Dates: start: 20130514, end: 20130514
  6. PRIVIGEN [Suspect]
     Dosage: INFUSION RATE 100 ML/MIN
     Route: 042
     Dates: start: 20130520, end: 20130520
  7. PRIVIGEN [Suspect]
     Dosage: INFUSION RATE 100 ML/MIN
     Route: 042
     Dates: start: 20130520, end: 20130520
  8. PRIVIGEN [Suspect]
     Dosage: INFUSION RATE 100 ML/MIN
     Route: 042
     Dates: start: 20130621, end: 20130621
  9. PRIVIGEN [Suspect]
     Dosage: INFUSION RATE 100 ML/MIN
     Route: 042
     Dates: start: 20130621, end: 20130621

REACTIONS (3)
  - Dyspnoea [Recovered/Resolved]
  - Chills [Recovered/Resolved]
  - Splenectomy [Recovered/Resolved]
